FAERS Safety Report 24266807 (Version 1)
Quarter: 2024Q3

REPORT INFORMATION
  Report Type: Report from Study
  Country: US (occurrence: US)
  Receive Date: 20240830
  Receipt Date: 20240830
  Transmission Date: 20241016
  Serious: Yes (Hospitalization, Other)
  Sender: GILEAD
  Company Number: US-GILEAD-2024-0685435

PATIENT
  Sex: Male

DRUGS (1)
  1. AZTREONAM LYSINE [Suspect]
     Active Substance: AZTREONAM LYSINE
     Indication: Bacterial disease carrier
     Dosage: INHALE 1 VIAL (75 MG) VIA ALTERA NEBULIZER EVERY 8 HOURS CYCLING 28 DAYS ON, 28 DAYS OFF
     Route: 055
     Dates: start: 20231018

REACTIONS (3)
  - Unevaluable event [Unknown]
  - Lung transplant [Unknown]
  - Off label use [Unknown]
